FAERS Safety Report 4721978-2 (Version None)
Quarter: 2005Q3

REPORT INFORMATION
  Report Type: 
  Country: None (occurrence: None)
  Receive Date: 20050722
  Receipt Date: 20050714
  Transmission Date: 20060218
  Serious: Yes (Other)
  Sender: FDA-Public Use
  Company Number: 2005PK01220

PATIENT
  Age: 4 Year
  Sex: Male
  Weight: 19 kg

DRUGS (1)
  1. EMLA [Suspect]
     Indication: MOLLUSCUM CONTAGIOSUM
     Route: 003
     Dates: start: 20050615, end: 20050615

REACTIONS (6)
  - ABDOMINAL PAIN [None]
  - ACCIDENTAL OVERDOSE [None]
  - MEDICATION ERROR [None]
  - METHAEMOGLOBINAEMIA [None]
  - RESPIRATORY DISTRESS [None]
  - VOMITING [None]
